FAERS Safety Report 7072497-2 (Version None)
Quarter: 2010Q4

REPORT INFORMATION
  Report Type: 
  Country: None (occurrence: None)
  Receive Date: 20101029
  Receipt Date: 20101019
  Transmission Date: 20110411
  Serious: Yes (Hospitalization)
  Sender: FDA-Public Use
  Company Number: US-JNJFOC-20101006696

PATIENT
  Sex: Female
  Weight: 32.5 kg

DRUGS (12)
  1. INFLIXIMAB, RECOMBINANT [Suspect]
     Indication: INFLAMMATORY BOWEL DISEASE
     Route: 042
  2. INFLIXIMAB, RECOMBINANT [Suspect]
     Route: 042
  3. MESALAMINE [Concomitant]
  4. GROWTH HORMONE [Concomitant]
  5. VICODIN [Concomitant]
  6. VSL3 [Concomitant]
  7. MIRALAX [Concomitant]
  8. LODINE [Concomitant]
  9. GABAPENTIN [Concomitant]
  10. VIACTIV CALCIUM CHEWS [Concomitant]
  11. NITROFURANTOIN [Concomitant]
  12. LUPRON [Concomitant]

REACTIONS (1)
  - CELLULITIS [None]
